FAERS Safety Report 20410772 (Version 1)
Quarter: 2022Q1

REPORT INFORMATION
  Report Type: Spontaneous
  Country: US (occurrence: None)
  Receive Date: 20220131
  Receipt Date: 20220131
  Transmission Date: 20220423
  Serious: Yes (Disabling)
  Sender: FDA-Public Use
  Company Number: None

PATIENT
  Age: 30 Year
  Sex: Male
  Weight: 77 kg

DRUGS (2)
  1. CABENUVA [Suspect]
     Active Substance: CABOTEGRAVIR\RILPIVIRINE
     Indication: Pain
     Dosage: OTHER QUANTITY : 2 INJECTION(S);?FREQUENCY : DAILY;?
     Route: 030
     Dates: start: 20220124, end: 20220124
  2. DULOXETINE [Concomitant]
     Active Substance: DULOXETINE

REACTIONS (3)
  - Gait inability [None]
  - Impaired work ability [None]
  - Pain [None]

NARRATIVE: CASE EVENT DATE: 20220125
